FAERS Safety Report 8348223-3 (Version None)
Quarter: 2012Q2

REPORT INFORMATION
  Report Type: 
  Country: None (occurrence: None)
  Receive Date: 20120509
  Receipt Date: 20120504
  Transmission Date: 20120825
  Serious: Yes (Death, Other)
  Sender: FDA-Public Use
  Company Number: PHHY2012ES038252

PATIENT
  Age: 88 Year
  Sex: Female

DRUGS (2)
  1. TRIFLUSAL SANDOZ [Suspect]
     Indication: PERIPHERAL ISCHAEMIA
     Dosage: UNK
     Route: 048
     Dates: start: 20101201
  2. ENOXAPARIN [Suspect]
     Indication: PERIPHERAL ISCHAEMIA
     Route: 058
     Dates: start: 20101201

REACTIONS (2)
  - RETROPERITONEAL HAEMATOMA [None]
  - HYPOVOLAEMIC SHOCK [None]
